FAERS Safety Report 9623899 (Version 2)
Quarter: 2014Q1

REPORT INFORMATION
  Report Type: Spontaneous
  Country: FR (occurrence: None)
  Receive Date: 20131010
  Receipt Date: 20140102
  Transmission Date: 20141002
  Serious: Yes (Hospitalization)
  Sender: FDA-Public Use
  Company Number: SYM-2013-11370

PATIENT
  Age: 91 Year
  Sex: Female

DRUGS (14)
  1. FLAGYL [Suspect]
     Indication: PYELONEPHRITIS
     Route: 048
     Dates: start: 20130905, end: 20130910
  2. LOVENOX [Suspect]
     Indication: PRODUCT USED FOR UNKNOWN INDICATION
     Route: 048
     Dates: start: 20130906
  3. CEFTRIAXONE SODIUM(CEFTRIAXONE SODIUM)(CEFTRIAXONE SODIUM) [Concomitant]
  4. APROVEL(IRBESARTAN)(IRBESARTAN) [Concomitant]
  5. CORDIPATCH(GLYCERYL TRINITRATE)(GLYCERYL TRINITRATE) [Concomitant]
  6. TOCO(TOCOPHERYL ACETATE)(TOCOPHERYL ACETATE) [Concomitant]
  7. TEMERIT(NEBIVOLOL HYDROCHLORIDE)(NEBIVOLOL HYDROCHLORIDE) [Concomitant]
  8. PREVISCAN(FLUINDIONE(FLUINDIONE) [Concomitant]
  9. PRAZEPAM(PRAZEPAM)(PRAZEPAM) [Concomitant]
  10. SERTRALINE(SERTRALINE)(SERTRALINE) [Concomitant]
  11. LEVOTHYROX(LEVOTHYROXINE SODIUM(LEVOTHROXINE SODIUM) [Concomitant]
  12. CONTALAX(BISACODYL)(BISACODYL) [Concomitant]
  13. AUGMENTIN [Concomitant]
  14. ROCEPHINE(CEFTRIAXONE SODIUM)(CEFTRIAXONE SODIUM) [Concomitant]

REACTIONS (3)
  - Leukopenia [None]
  - White blood cell disorder [None]
  - Neutrophil count decreased [None]
